FAERS Safety Report 6199008-8 (Version None)
Quarter: 2009Q2

REPORT INFORMATION
  Report Type: 
  Country: None (occurrence: None)
  Receive Date: 20090522
  Receipt Date: 20090512
  Transmission Date: 20091009
  Serious: Yes (Other)
  Sender: FDA-Public Use
  Company Number: US-JNJFOC-20090502823

PATIENT
  Sex: Female

DRUGS (23)
  1. REMICADE [Suspect]
     Indication: RHEUMATOID ARTHRITIS
     Dosage: 44TH DOSE, LAST DOSE
     Route: 042
  2. SUCRALFATE [Concomitant]
  3. ALBUTEROL [Concomitant]
  4. AMLODIPINE [Concomitant]
  5. LIPASE [Concomitant]
  6. AMYLASE [Concomitant]
  7. PROTEASE [Concomitant]
  8. ASPIRIN [Concomitant]
  9. ATORVASTATIN CALCIUM [Concomitant]
  10. CITRACAL [Concomitant]
  11. FLUCONAZOLE [Concomitant]
  12. ADVAIR HFA [Concomitant]
  13. FOLIC ACID [Concomitant]
  14. LASIX [Concomitant]
  15. ACETAMINOPHEN AND HYDROCODONE BITARTRATE [Concomitant]
  16. HYDREA [Concomitant]
  17. TOPROL-XL [Concomitant]
  18. M.V.I. [Concomitant]
  19. LOVAZA [Concomitant]
  20. ONDANSETRON [Concomitant]
  21. PANTOPRAZOLE SODIUM [Concomitant]
  22. PROCHLORPERAZINE [Concomitant]
  23. ZOLOFT [Concomitant]

REACTIONS (2)
  - PANCREATIC CARCINOMA [None]
  - RHEUMATOID NODULE [None]
